FAERS Safety Report 23759988 (Version 2)
Quarter: 2024Q2

REPORT INFORMATION
  Report Type: Report from Study
  Country: US (occurrence: US)
  Receive Date: 20240419
  Receipt Date: 20240502
  Transmission Date: 20240716
  Serious: No
  Sender: FDA-Public Use
  Company Number: US-ABBVIE-5718645

PATIENT
  Sex: Male
  Weight: 116 kg

DRUGS (2)
  1. RINVOQ [Suspect]
     Active Substance: UPADACITINIB
     Indication: Dermatitis contact
     Dosage: FORM STRENGTH:15 MILLIGRAM
     Route: 048
     Dates: start: 202303, end: 202403
  2. WELLBUTRIN [Suspect]
     Active Substance: BUPROPION HYDROCHLORIDE
     Indication: Depression
     Route: 065

REACTIONS (16)
  - Blood cholesterol increased [Unknown]
  - Wound secretion [Unknown]
  - Skin laceration [Not Recovered/Not Resolved]
  - Pain [Not Recovered/Not Resolved]
  - Skin haemorrhage [Not Recovered/Not Resolved]
  - Mobility decreased [Unknown]
  - Dermatitis contact [Not Recovered/Not Resolved]
  - Hypertension [Not Recovered/Not Resolved]
  - Infection susceptibility increased [Not Recovered/Not Resolved]
  - Skin exfoliation [Not Recovered/Not Resolved]
  - Off label use [Not Recovered/Not Resolved]
  - White blood cell count increased [Unknown]
  - Platelet count increased [Unknown]
  - Confusional state [Unknown]
  - Skin reaction [Unknown]
  - Skin fissures [Not Recovered/Not Resolved]

NARRATIVE: CASE EVENT DATE: 20230101
